FAERS Safety Report 4962113-5 (Version None)
Quarter: 2006Q2

REPORT INFORMATION
  Report Type: 
  Country: None (occurrence: None)
  Receive Date: 20060404
  Receipt Date: 20050914
  Transmission Date: 20061013
  Serious: Yes (Hospitalization, Disabling)
  Sender: FDA-Public Use
  Company Number: US-MERCK-0509USA02213

PATIENT
  Age: 49 Year
  Sex: Male
  Weight: 95 kg

DRUGS (2)
  1. VIOXX [Suspect]
     Indication: GOUT
     Route: 048
     Dates: start: 20020402, end: 20040801
  2. VIOXX [Suspect]
     Indication: ARTHRALGIA
     Route: 048
     Dates: start: 20020402, end: 20040801

REACTIONS (7)
  - APNOEA TEST [None]
  - CARDIAC DISORDER [None]
  - CORONARY ARTERY DISEASE [None]
  - HEART INJURY [None]
  - HYPERTENSION [None]
  - INTERVERTEBRAL DISC PROTRUSION [None]
  - MYOCARDIAL INFARCTION [None]
